FAERS Safety Report 8495718-8 (Version None)
Quarter: 2012Q2

REPORT INFORMATION
  Report Type: 
  Country: None (occurrence: None)
  Receive Date: 20120405
  Receipt Date: 20091106
  Transmission Date: 20120825
  Serious: Yes (Other)
  Sender: FDA-Public Use
  Company Number: PHEH2009US15330

PATIENT
  Age: 83 Year
  Sex: Female

DRUGS (4)
  1. RECLAST [Suspect]
     Indication: OSTEOPOROSIS
     Dosage: 5 MG ONCE YEARLY, IV INFUSION
     Dates: start: 20091105
  2. ZOCOR [Concomitant]
  3. PREMARIN [Concomitant]
  4. LOZOL [Concomitant]

REACTIONS (1)
  - ERYTHEMA [None]
